FAERS Safety Report 7254623-5 (Version None)
Quarter: 2011Q1

REPORT INFORMATION
  Report Type: 
  Country: None (occurrence: None)
  Receive Date: 20110129
  Receipt Date: 20100218
  Transmission Date: 20110831
  Serious: No
  Sender: FDA-Public Use
  Company Number: US-ABBOTT-10P-163-0628236-00

PATIENT
  Sex: Female

DRUGS (4)
  1. HUMIRA [Suspect]
     Dosage: HUMIRA PEN
     Route: 058
     Dates: start: 20080101
  2. HUMIRA [Suspect]
     Indication: RHEUMATOID ARTHRITIS
     Dosage: PRE-FILLED SYRINGES
     Route: 058
     Dates: start: 20050101, end: 20080101
  3. METHOTREXATE [Concomitant]
     Indication: RHEUMATOID ARTHRITIS
  4. LYRICA [Concomitant]
     Indication: RHEUMATOID ARTHRITIS

REACTIONS (2)
  - HYPERTENSION [None]
  - NASOPHARYNGITIS [None]
